FAERS Safety Report 17887029 (Version 1)
Quarter: 2020Q2

REPORT INFORMATION
  Report Type: Spontaneous
  Country: US (occurrence: US)
  Receive Date: 20200611
  Receipt Date: 20200611
  Transmission Date: 20200714
  Serious: No
  Sender: FDA-Public Use
  Company Number: US-BRACCO-2019US02979

PATIENT
  Age: 72 Year
  Sex: Female

DRUGS (4)
  1. SYMBICORT [Concomitant]
     Active Substance: BUDESONIDE\FORMOTEROL FUMARATE DIHYDRATE
     Dosage: UNK
  2. LEVALBUTEROL                       /01419301/ [Concomitant]
     Active Substance: LEVALBUTEROL
     Dosage: UNK, AS NECESSARY
  3. MULTIHANCE [Suspect]
     Active Substance: GADOBENATE DIMEGLUMINE
     Indication: MAGNETIC RESONANCE IMAGING BRAIN
     Dosage: 17 ML, SINGLE
     Dates: start: 20190610, end: 20190610
  4. OMEPRAZOLE. [Concomitant]
     Active Substance: OMEPRAZOLE
     Dosage: UNK

REACTIONS (2)
  - Rash erythematous [Unknown]
  - Urticaria [Unknown]

NARRATIVE: CASE EVENT DATE: 20190610
